FAERS Safety Report 16394185 (Version 2)
Quarter: 2019Q3

REPORT INFORMATION
  Report Type: Spontaneous
  Country: US (occurrence: US)
  Receive Date: 20190605
  Receipt Date: 20190701
  Transmission Date: 20191004
  Serious: Yes (Death)
  Sender: FDA-Public Use
  Company Number: US-JNJFOC-20190602816

PATIENT
  Sex: Male

DRUGS (5)
  1. INVEGA SUSTENNA [Suspect]
     Active Substance: PALIPERIDONE PALMITATE
     Indication: SCHIZOPHRENIA
     Route: 030
     Dates: start: 20171127
  2. BENZTROPINE. [Concomitant]
     Active Substance: BENZTROPINE
     Route: 048
     Dates: start: 20171106
  3. ZYPREXA [Concomitant]
     Active Substance: OLANZAPINE
     Indication: SCHIZOPHRENIA
     Route: 048
  4. INVEGA [Concomitant]
     Active Substance: PALIPERIDONE
     Indication: SCHIZOPHRENIA
     Route: 048
     Dates: start: 20190227
  5. NEURONTIN [Concomitant]
     Active Substance: GABAPENTIN
     Indication: ANXIETY
     Route: 048
     Dates: start: 20180613

REACTIONS (1)
  - Road traffic accident [Fatal]
